FAERS Safety Report 4857170-0 (Version None)
Quarter: 2005Q4

REPORT INFORMATION
  Report Type: 
  Country: None (occurrence: None)
  Receive Date: 20051219
  Receipt Date: 20050712
  Transmission Date: 20060501
  Serious: No
  Sender: FDA-Public Use
  Company Number: US-GLAXOSMITHKLINE-A0565863A

PATIENT
  Age: 47 Year
  Sex: Female

DRUGS (2)
  1. NICODERM CQ [Suspect]
     Dates: start: 20050620, end: 20050712
  2. NICORETTE (MINT) [Suspect]

REACTIONS (1)
  - NICOTINE DEPENDENCE [None]
